FAERS Safety Report 8915456 (Version 1)
Quarter: 2012Q4

REPORT INFORMATION
  Report Type: 
  Country: US (occurrence: US)
  Receive Date: 20121119
  Receipt Date: 20121119
  Transmission Date: 20130627
  Serious: Yes (Other)
  Sender: FDA-Public Use
  Company Number: US-US-EMD SERONO, INC.-7173460

PATIENT
  Age: 31 Year
  Sex: Female

DRUGS (3)
  1. RECOMBINANT HUMAN FOLLICLE-STIMULATING HORMONE (R-HFSH) [Suspect]
     Indication: INFERTILITY
  2. LUVERIS [Suspect]
     Indication: INFERTILITY
  3. CETROTIDE [Suspect]
     Indication: INFERTILITY

REACTIONS (2)
  - Ectopic pregnancy [Unknown]
  - Exposure during pregnancy [None]
